FAERS Safety Report 22219614 (Version 3)
Quarter: 2023Q2

REPORT INFORMATION
  Report Type: Spontaneous
  Country: US (occurrence: US)
  Receive Date: 20230417
  Receipt Date: 20230630
  Transmission Date: 20230721
  Serious: No
  Sender: FDA-Public Use
  Company Number: US-KARYOPHARM-2023KPT001065

PATIENT

DRUGS (16)
  1. XPOVIO [Suspect]
     Active Substance: SELINEXOR
     Indication: Plasma cell myeloma
     Dosage: 60 MG, WEEKLY
     Route: 048
     Dates: start: 202304, end: 202304
  2. XPOVIO [Suspect]
     Active Substance: SELINEXOR
     Dosage: 40 MG, WEEKLY
     Route: 048
     Dates: start: 202304, end: 202305
  3. XPOVIO [Suspect]
     Active Substance: SELINEXOR
     Dosage: 40 MG, WEEKLY
     Route: 048
     Dates: start: 2023
  4. ALBUTEROL [Concomitant]
     Active Substance: ALBUTEROL
  5. AMLODIPINE [Concomitant]
     Active Substance: AMLODIPINE BESYLATE
  6. BENZONATATE [Concomitant]
     Active Substance: BENZONATATE
  7. DEXAMETHASONE [Concomitant]
     Active Substance: DEXAMETHASONE
  8. FLOVENT [Concomitant]
     Active Substance: FLUTICASONE PROPIONATE
  9. GABAPENTIN [Concomitant]
     Active Substance: GABAPENTIN
  10. METHOCARBAMOL [Concomitant]
     Active Substance: METHOCARBAMOL
  11. MONTELUKAST [Concomitant]
     Active Substance: MONTELUKAST SODIUM
  12. NYSTATIN [Concomitant]
     Active Substance: NYSTATIN
  13. POMALYST [Concomitant]
     Active Substance: POMALIDOMIDE
  14. ONDANSETRON [Concomitant]
     Active Substance: ONDANSETRON
  15. PROCHLORPERAZINE [Concomitant]
     Active Substance: PROCHLORPERAZINE
  16. OMEPRAZOLE [Concomitant]
     Active Substance: OMEPRAZOLE

REACTIONS (11)
  - Sinusitis [Unknown]
  - White blood cell count decreased [Unknown]
  - Cough [Unknown]
  - Vomiting [Unknown]
  - Fatigue [Unknown]
  - Nausea [Not Recovered/Not Resolved]
  - Asthenia [Not Recovered/Not Resolved]
  - Weight decreased [Unknown]
  - Bronchitis [Unknown]
  - Pyrexia [Unknown]
  - Product dose omission issue [Unknown]

NARRATIVE: CASE EVENT DATE: 20230401
